FAERS Safety Report 9744839 (Version 1)
Quarter: 2013Q4

REPORT INFORMATION
  Report Type: Report from Study
  Country: CA (occurrence: CA)
  Receive Date: 20131211
  Receipt Date: 20131211
  Transmission Date: 20140711
  Serious: Yes (Other)
  Sender: FDA-Public Use
  Company Number: CA-ROCHE-1316895

PATIENT
  Sex: Female

DRUGS (13)
  1. RITUXAN [Suspect]
     Indication: RHEUMATOID ARTHRITIS
     Dosage: FREQUENCY: DAY 1, 15, LAST DOSE ON 26/FEB/2013
     Route: 042
     Dates: start: 20120124
  2. ACETAMINOPHEN [Concomitant]
     Indication: PREMEDICATION
     Route: 048
     Dates: start: 20120124
  3. DIPHENHYDRAMINE HCL [Concomitant]
     Indication: PREMEDICATION
     Route: 048
     Dates: start: 20120124
  4. METHYLPREDNISOLONE [Concomitant]
     Indication: PREMEDICATION
     Route: 042
     Dates: start: 20120124
  5. METHOTREXAT [Concomitant]
     Route: 048
  6. DICLOFENAC [Concomitant]
     Route: 065
  7. ESTRADIOL [Concomitant]
     Route: 065
  8. ELAVIL (CANADA) [Concomitant]
     Route: 065
  9. NEXIUM [Concomitant]
     Route: 065
  10. COVERSYL [Concomitant]
     Route: 065
  11. CRESTOR [Concomitant]
     Route: 065
  12. FOLIC ACID [Concomitant]
  13. COENZYME Q-10 [Concomitant]

REACTIONS (1)
  - Ovarian cyst [Unknown]
